FAERS Safety Report 9169926 (Version 1)
Quarter: 2013Q1

REPORT INFORMATION
  Report Type: Spontaneous
  Country: US (occurrence: US)
  Receive Date: 20130319
  Receipt Date: 20130319
  Transmission Date: 20140127
  Serious: No
  Sender: FDA-Public Use
  Company Number: US-BIOGENIDEC-2012BI047303

PATIENT
  Age: 25 Year
  Sex: Male

DRUGS (1)
  1. AVONEX [Suspect]
     Indication: MULTIPLE SCLEROSIS
     Route: 030
     Dates: start: 20090618

REACTIONS (7)
  - Adverse event [Unknown]
  - Wisdom teeth removal [Unknown]
  - Drug dose omission [Unknown]
  - Influenza like illness [Not Recovered/Not Resolved]
  - Injection site pain [Not Recovered/Not Resolved]
  - Pain [Unknown]
  - Headache [Unknown]
